FAERS Safety Report 23099029 (Version 1)
Quarter: 2023Q4

REPORT INFORMATION
  Report Type: Spontaneous
  Country: BR (occurrence: BR)
  Receive Date: 20231024
  Receipt Date: 20231024
  Transmission Date: 20240109
  Serious: Yes (Other)
  Sender: FDA-Public Use
  Company Number: BR-ROCHE-3444226

PATIENT
  Sex: Male
  Weight: 68 kg

DRUGS (3)
  1. RIVOTRIL [Suspect]
     Active Substance: CLONAZEPAM
     Indication: Panic disorder
     Dosage: HALF TABLET, ONGOING
     Route: 065
     Dates: start: 2010
  2. RIVOTRIL [Suspect]
     Active Substance: CLONAZEPAM
     Indication: Insomnia
     Dosage: NEW PACKAGING
     Route: 065
     Dates: start: 2023
  3. RIVOTRIL [Suspect]
     Active Substance: CLONAZEPAM
     Dosage: TAKES EVEN LESS THAN HALF A TABLET
     Route: 065
     Dates: start: 2023

REACTIONS (8)
  - Delirium [Not Recovered/Not Resolved]
  - Feeling abnormal [Not Recovered/Not Resolved]
  - Derealisation [Not Recovered/Not Resolved]
  - Somnolence [Recovered/Resolved]
  - Sluggishness [Recovered/Resolved]
  - Therapeutic product effect decreased [Not Recovered/Not Resolved]
  - Wrong technique in product usage process [Unknown]
  - Intentional product use issue [Unknown]

NARRATIVE: CASE EVENT DATE: 20100101
